FAERS Safety Report 9355302 (Version 1)
Quarter: 2013Q2

REPORT INFORMATION
  Report Type: Spontaneous
  Country: US (occurrence: None)
  Receive Date: 20130618
  Receipt Date: 20130618
  Transmission Date: 20140414
  Serious: Yes (Life-Threatening, Hospitalization)
  Sender: FDA-Public Use
  Company Number: None

PATIENT
  Age: 21 Year
  Sex: Female
  Weight: 148 kg

DRUGS (5)
  1. APRI [Suspect]
     Indication: CONTRACEPTION
     Dosage: SEVERAL YEARS
     Route: 048
  2. LAMOTRIGINE [Concomitant]
  3. LEVETIRACTEM [Concomitant]
  4. LORAZEPAM [Concomitant]
  5. PAROXETINE [Concomitant]

REACTIONS (4)
  - Pain in extremity [None]
  - Deep vein thrombosis [None]
  - Pulmonary embolism [None]
  - Oedema peripheral [None]
